FAERS Safety Report 18163115 (Version 2)
Quarter: 2020Q3

REPORT INFORMATION
  Report Type: Spontaneous
  Country: US (occurrence: US)
  Receive Date: 20200818
  Receipt Date: 20200902
  Transmission Date: 20201103
  Serious: Yes (Other)
  Sender: FDA-Public Use
  Company Number: US-AMGEN-USASP2020129381

PATIENT
  Age: 74 Year
  Sex: Female

DRUGS (2)
  1. PROLIA [Suspect]
     Active Substance: DENOSUMAB
     Indication: OSTEOPOROSIS
     Dosage: 60 MILLIGRAM, Q6MO
     Route: 058
  2. CALCITONIN SALMON. [Concomitant]
     Active Substance: CALCITONIN SALMON

REACTIONS (4)
  - Spinal compression fracture [Unknown]
  - Balance disorder [Unknown]
  - Myalgia [Unknown]
  - Fall [Unknown]

NARRATIVE: CASE EVENT DATE: 20200729
